FAERS Safety Report 7810080-9 (Version None)
Quarter: 2011Q4

REPORT INFORMATION
  Report Type: 
  Country: None (occurrence: None)
  Receive Date: 20111012
  Receipt Date: 20110929
  Transmission Date: 20120403
  Serious: Yes (Hospitalization)
  Sender: FDA-Public Use
  Company Number: DE-MYLANLABS-2011S1020308

PATIENT
  Age: 35 Year
  Sex: Male

DRUGS (4)
  1. RANITIDINE [Suspect]
     Route: 048
     Dates: start: 20110928
  2. MAGNESIUM HYDROXIDE TAB [Suspect]
     Route: 048
     Dates: start: 20110928
  3. RANITIDINE [Suspect]
     Route: 048
     Dates: start: 20110928
  4. METFORMIN HYDROCHLORIDE [Suspect]
     Route: 048
     Dates: start: 20110928

REACTIONS (2)
  - OVERDOSE [None]
  - DRUG ABUSE [None]
